FAERS Safety Report 19395701 (Version 1)
Quarter: 2021Q2

REPORT INFORMATION
  Report Type: Spontaneous
  Country: CN (occurrence: CN)
  Receive Date: 20210609
  Receipt Date: 20210609
  Transmission Date: 20210717
  Serious: Yes (Life-Threatening)
  Sender: FDA-Public Use
  Company Number: CN-FRESENIUS KABI-FK202105798

PATIENT
  Age: 76 Year
  Sex: Female
  Weight: 52 kg

DRUGS (1)
  1. LIPOVENOES MCT 20% [Suspect]
     Active Substance: EGG PHOSPHOLIPIDS\GLYCERIN\MEDIUM-CHAIN TRIGLYCERIDES\SOYBEAN OIL
     Indication: EATING DISORDER
     Dosage: FORM OF ADMIN. WAS REPORTED AS INJECTION IN THE SOURCE.
     Route: 041
     Dates: start: 20210525, end: 20210525

REACTIONS (2)
  - Chills [Recovered/Resolved]
  - Dyspnoea [Recovering/Resolving]

NARRATIVE: CASE EVENT DATE: 20210525
